FAERS Safety Report 5830437-5 (Version None)
Quarter: 2008Q3

REPORT INFORMATION
  Report Type: 
  Country: None (occurrence: None)
  Receive Date: 20080801
  Receipt Date: 20080724
  Transmission Date: 20090109
  Serious: Yes (Hospitalization)
  Sender: FDA-Public Use
  Company Number: US-AMGEN-QUU280427

PATIENT
  Sex: Female

DRUGS (6)
  1. ENBREL [Suspect]
     Indication: DRUG USE FOR UNKNOWN INDICATION
     Route: 058
     Dates: start: 20041028, end: 20060101
  2. DAPSONE [Concomitant]
  3. CLOBETASOL PROPIONATE [Concomitant]
  4. PREDNISONE [Concomitant]
  5. CELLCEPT [Concomitant]
  6. ACTONEL [Concomitant]

REACTIONS (2)
  - AUTOIMMUNE THYROIDITIS [None]
  - THYROID CANCER [None]
